FAERS Safety Report 10503733 (Version 3)
Quarter: 2014Q4

REPORT INFORMATION
  Report Type: Spontaneous
  Country: US (occurrence: None)
  Receive Date: 20141006
  Receipt Date: 20141110
  Transmission Date: 20150528
  Serious: Yes (Other)
  Sender: FDA-Public Use
  Company Number: 2014-US-012372

PATIENT
  Age: 58 Year
  Sex: Female
  Weight: 54.4 kg

DRUGS (5)
  1. ZOLOFT [Concomitant]
     Active Substance: SERTRALINE HYDROCHLORIDE
  2. XYREM [Suspect]
     Active Substance: SODIUM OXYBATE
     Indication: NARCOLEPSY
     Route: 048
     Dates: start: 201409, end: 2014
  3. TOPAMAX [Concomitant]
     Active Substance: TOPIRAMATE
  4. NEXIUM [Concomitant]
     Active Substance: ESOMEPRAZOLE MAGNESIUM
  5. RECLAST (ZOLEDRONIC ACID) [Concomitant]

REACTIONS (8)
  - Alcohol use [None]
  - Vomiting [None]
  - Swelling face [None]
  - Wrong technique in drug usage process [None]
  - Peripheral swelling [None]
  - Headache [None]
  - Hallucination, auditory [None]
  - Hallucination, olfactory [None]

NARRATIVE: CASE EVENT DATE: 201409
